FAERS Safety Report 8317767 (Version 3)
Quarter: 2013Q2

REPORT INFORMATION
  Report Type: Spontaneous
  Country: US (occurrence: US)
  Receive Date: 20120102
  Receipt Date: 20130523
  Transmission Date: 20140414
  Serious: Yes (Other)
  Sender: FDA-Public Use
  Company Number: US-ROCHE-783639

PATIENT
  Age: 45 Year
  Sex: Male
  Weight: 74.91 kg

DRUGS (2)
  1. ACCUTANE [Suspect]
     Indication: ACNE
     Dosage: 20-40 MG
     Route: 048
     Dates: start: 20050111, end: 20050625
  2. TYLENOL [Concomitant]
     Indication: PRODUCT USED FOR UNKNOWN INDICATION
     Route: 048

REACTIONS (14)
  - Crohn^s disease [Unknown]
  - Inflammatory bowel disease [Unknown]
  - Stress [Unknown]
  - Colitis ulcerative [Unknown]
  - Bipolar disorder [Unknown]
  - Depression [Unknown]
  - Irritable bowel syndrome [Unknown]
  - Blood cholesterol increased [Unknown]
  - Blood triglycerides increased [Unknown]
  - Lip dry [Unknown]
  - Vision blurred [Unknown]
  - Arthralgia [Unknown]
  - Dry eye [Unknown]
  - Dry skin [Unknown]
